FAERS Safety Report 8905829 (Version 1)
Quarter: 2012Q4

REPORT INFORMATION
  Report Type: 
  Country: SE (occurrence: SE)
  Receive Date: 20121113
  Receipt Date: 20121113
  Transmission Date: 20130627
  Serious: Yes (Hospitalization)
  Sender: FDA-Public Use
  Company Number: SE-PFIZER INC-2012279128

PATIENT
  Age: 76 Year
  Sex: Male
  Weight: 126 kg

DRUGS (13)
  1. GENOTROPIN [Suspect]
     Dosage: 0.3 mg, 1x/day, 7 injections/week
     Route: 058
     Dates: start: 20030830
  2. BEHEPAN [Concomitant]
     Indication: VITAMIN B12 DEFICIENCY
     Dosage: UNK
     Dates: start: 19980303
  3. BEHEPAN [Concomitant]
     Indication: ANAEMIA
  4. LOPID [Concomitant]
     Indication: HYPERLIPIDEMIA
     Dosage: UNK
     Dates: start: 19980303
  5. NORVASC [Concomitant]
     Indication: HYPERTENSION
     Dosage: UNK
     Dates: start: 19980303
  6. RENITEC [Concomitant]
     Indication: HYPERTENSION
     Dosage: UNK
     Dates: start: 19980303
  7. TROMBYL [Concomitant]
     Indication: STROKE
     Dosage: UNK
     Dates: start: 19980303
  8. LEVAXIN [Concomitant]
     Indication: TSH DECREASED
     Dosage: UNK
     Dates: start: 19991216
  9. LEVAXIN [Concomitant]
     Indication: PRIMARY HYPOTHYROIDISM
  10. ZYLORIC ^FAES^ [Concomitant]
     Indication: HYPERURICEMIA
     Dosage: UNK
     Dates: start: 20020522
  11. TESTOVIRON-DEPOT [Concomitant]
     Indication: LH DECREASED
     Dosage: UNK
     Dates: start: 19980601
  12. TESTOVIRON-DEPOT [Concomitant]
     Indication: FSH DECREASED
  13. TESTOVIRON-DEPOT [Concomitant]
     Indication: TESTICULAR HYPOGONADISM

REACTIONS (1)
  - Pharyngeal disorder [Unknown]
